FAERS Safety Report 5400231-8 (Version None)
Quarter: 2007Q3

REPORT INFORMATION
  Report Type: 
  Country: None (occurrence: None)
  Receive Date: 20070725
  Receipt Date: 20070717
  Transmission Date: 20080115
  Serious: Yes (Hospitalization)
  Sender: FDA-Public Use
  Company Number: TCI2006A05995

PATIENT
  Age: 57 Year
  Sex: Male

DRUGS (5)
  1. ACTOS [Suspect]
     Indication: TYPE 2 DIABETES MELLITUS
     Dosage: 15 MG (15 MG, 1-D), PER ORAL
     Route: 048
     Dates: start: 20050609
  2. AY-4166 (NATEGLINIDE0 [Suspect]
     Indication: TYPE 2 DIABETES MELLITUS
     Dosage: 270 MG (90 MG, 3 IN 1 D), PER ORAL
     Route: 048
     Dates: start: 20050928, end: 20060927
  3. NATEGLINIDE [Suspect]
     Indication: TYPE 2 DIABETES MELLITUS
     Dosage: 270 MG (270 MG, 1 D) PER ORAL, 270 MG (270 MG, 1 D) PER ORAL
     Route: 048
     Dates: start: 20030910, end: 20050608
  4. NATEGLINIDE [Suspect]
     Indication: TYPE 2 DIABETES MELLITUS
     Dosage: 270 MG (270 MG, 1 D) PER ORAL, 270 MG (270 MG, 1 D) PER ORAL
     Route: 048
     Dates: start: 20060928
  5. TIMOPTOL-XE (TIMOLOL MALEATE) [Concomitant]

REACTIONS (1)
  - GASTROOESOPHAGEAL CANCER [None]
